FAERS Safety Report 6613979-4 (Version None)
Quarter: 2010Q1

REPORT INFORMATION
  Report Type: 
  Country: None (occurrence: None)
  Receive Date: 20100225
  Receipt Date: 20100210
  Transmission Date: 20100710
  Serious: Yes (Other)
  Sender: FDA-Public Use
  Company Number: 2010000528

PATIENT
  Age: 44 Year
  Sex: Male
  Weight: 88.7 kg

DRUGS (18)
  1. ERLOTINIB (ERLOTINIB) (TABLET) (ERLOTINIB) [Suspect]
     Indication: LUNG ADENOCARCINOMA
     Dosage: (150 MG, QD), ORAL; (100 MG, QD), ORAL
     Route: 048
     Dates: start: 20080522, end: 20080629
  2. ERLOTINIB (ERLOTINIB) (TABLET) (ERLOTINIB) [Suspect]
     Indication: LUNG ADENOCARCINOMA
     Dosage: (150 MG, QD), ORAL; (100 MG, QD), ORAL
     Route: 048
     Dates: start: 20080711, end: 20080902
  3. IRSOGLADINE MALEATE (IRSOGLADINE MALEATE) [Concomitant]
  4. ADONA (CARBAZOCHROME SODIUM SULFONATE) [Concomitant]
  5. TRANSAMIN (TRANEXAMIC ACID) [Concomitant]
  6. PRIMPERAN TAB [Concomitant]
  7. FAMOTIDINE [Concomitant]
  8. PREDNISOLONE [Concomitant]
  9. GLYCEROL 2.6% [Concomitant]
  10. ISOSORBIDE (ISOSORBIDE) [Concomitant]
  11. SOLITA-T1 [Concomitant]
  12. BETAMETHASONE [Concomitant]
  13. CODEINE PHOSPHATE (CODEINE PHOSPHATE) [Concomitant]
  14. ACETAMINOPHEN [Concomitant]
  15. GASMOTIN (MOSAPRIDE CITRATE) [Concomitant]
  16. RABEPRAZOLE SODIUM [Concomitant]
  17. NOVAMIN (PROCHLORPERAZINE) [Concomitant]
  18. BIOFERMIN (BIOFERMIN) [Concomitant]

REACTIONS (1)
  - MENINGITIS [None]
